FAERS Safety Report 13854862 (Version 1)
Quarter: 2017Q3

REPORT INFORMATION
  Report Type: Spontaneous
  Country: DE (occurrence: DE)
  Receive Date: 20170810
  Receipt Date: 20170810
  Transmission Date: 20171127
  Serious: Yes (Other)
  Sender: FDA-Public Use
  Company Number: PHHY2011DE71096

PATIENT
  Sex: Male

DRUGS (3)
  1. PAMIDRONATE [Suspect]
     Active Substance: PAMIDRONATE DISODIUM
     Indication: HODGKIN^S DISEASE
     Dosage: UNK UKN, UNK
     Route: 042
  2. BONDRONAT [Suspect]
     Active Substance: IBANDRONIC ACID
     Indication: HODGKIN^S DISEASE
     Dosage: UNK UKN, UNK
     Route: 065
  3. ZOLEDRONIC ACID [Suspect]
     Active Substance: ZOLEDRONIC ACID
     Indication: HODGKIN^S DISEASE
     Dosage: UNK UKN, UNK
     Route: 042

REACTIONS (2)
  - Abscess jaw [Unknown]
  - Osteonecrosis of jaw [Recovered/Resolved]
